APPROVED DRUG PRODUCT: CIPROFLOXACIN AND DEXAMETHASONE
Active Ingredient: CIPROFLOXACIN; DEXAMETHASONE
Strength: 0.3%;0.1%
Dosage Form/Route: SUSPENSION/DROPS;OTIC
Application: A215768 | Product #001 | TE Code: AB
Applicant: SENTISS AG
Approved: Jun 9, 2023 | RLD: No | RS: No | Type: RX